FAERS Safety Report 5530572-5 (Version None)
Quarter: 2007Q4

REPORT INFORMATION
  Report Type: 
  Country: None (occurrence: None)
  Receive Date: 20071130
  Receipt Date: 20071121
  Transmission Date: 20080405
  Serious: Yes (Hospitalization, Other)
  Sender: FDA-Public Use
  Company Number: US-ASTRAZENECA-2006UW01577

PATIENT
  Age: 42 Year
  Sex: Male
  Weight: 136.4 kg

DRUGS (5)
  1. SEROQUEL [Suspect]
     Indication: DEPRESSION
     Dosage: 100 TO 400 MG
     Route: 048
     Dates: start: 19960101
  2. SEROQUEL [Suspect]
     Indication: SLEEP DISORDER
     Dosage: 100 TO 400 MG
     Route: 048
     Dates: start: 19960101
  3. SEROQUEL [Suspect]
     Indication: BIPOLAR DISORDER
     Dosage: 100 TO 400 MG
     Route: 048
     Dates: start: 19960101
  4. EFFEXOR [Concomitant]
     Dates: start: 20010101
  5. ZOLOFT [Concomitant]

REACTIONS (5)
  - ANAEMIA [None]
  - DIABETES MELLITUS [None]
  - NEUROPATHY [None]
  - SUICIDE ATTEMPT [None]
  - THERMAL BURN [None]
